FAERS Safety Report 25474764 (Version 1)
Quarter: 2025Q2

REPORT INFORMATION
  Report Type: Spontaneous
  Country: US (occurrence: US)
  Receive Date: 20250624
  Receipt Date: 20250624
  Transmission Date: 20250716
  Serious: No
  Sender: SANOFI AVENTIS
  Company Number: US-SA-2025SA177657

PATIENT
  Age: 49 Year
  Sex: Female
  Weight: 77.098 kg

DRUGS (2)
  1. DUPIXENT [Suspect]
     Active Substance: DUPILUMAB
     Indication: Asthma
     Dosage: 300 MG, QOW
     Route: 058
  2. ILARIS [Concomitant]
     Active Substance: CANAKINUMAB

REACTIONS (1)
  - Malaise [Unknown]
